FAERS Safety Report 23523232 (Version 2)
Quarter: 2024Q1

REPORT INFORMATION
  Report Type: Spontaneous
  Country: US (occurrence: None)
  Receive Date: 20240214
  Receipt Date: 20240218
  Transmission Date: 20240410
  Serious: Yes (Other)
  Sender: FDA-Public Use
  Company Number: 2024A037930

PATIENT
  Sex: Male

DRUGS (1)
  1. BUDESONIDE [Suspect]
     Active Substance: BUDESONIDE
     Indication: Chronic obstructive pulmonary disease
     Dosage: 180 UG, BID DAILY DOSE: 360 MICROGRAM, TWO TIMES A DAY
     Route: 055

REACTIONS (2)
  - Foreign body aspiration [Unknown]
  - Off label use [Recovered/Resolved]
